FAERS Safety Report 13699348 (Version 1)
Quarter: 2017Q2

REPORT INFORMATION
  Report Type: Spontaneous
  Country: US (occurrence: US)
  Receive Date: 20170628
  Receipt Date: 20170628
  Transmission Date: 20170830
  Serious: Yes (Hospitalization)
  Sender: FDA-Public Use
  Company Number: US-VIFOR (INTERNATIONAL) INC.-VIT-2016-09139

PATIENT
  Sex: Female

DRUGS (14)
  1. LISINOPRIL. [Concomitant]
     Active Substance: LISINOPRIL
  2. GUAIFENESIN. [Concomitant]
     Active Substance: GUAIFENESIN
  3. SODIUM POLYSTYRENE SULFONATE. [Concomitant]
     Active Substance: SODIUM POLYSTYRENE SULFONATE
  4. LANOXIN [Concomitant]
     Active Substance: DIGOXIN
  5. METFORMIN/GLIBENCLAMIDE [Concomitant]
  6. CARVEDILOL. [Concomitant]
     Active Substance: CARVEDILOL
  7. PRAVASTATIN SODIUM. [Concomitant]
     Active Substance: PRAVASTATIN SODIUM
  8. VELTASSA [Suspect]
     Active Substance: PATIROMER
     Indication: PRODUCT USED FOR UNKNOWN INDICATION
     Route: 065
     Dates: start: 201611, end: 2017
  9. PROTONIX [Concomitant]
     Active Substance: PANTOPRAZOLE SODIUM
  10. ISOSORBIDE. [Concomitant]
     Active Substance: ISOSORBIDE
  11. COUMADIN [Concomitant]
     Active Substance: WARFARIN SODIUM
  12. ACETYLSALICYLIC ACID [Concomitant]
     Active Substance: ASPIRIN
  13. IPRATROPIUM BROMIDE/SALBUTAMOL SULFATE [Concomitant]
  14. FUROSEMIDE. [Concomitant]
     Active Substance: FUROSEMIDE

REACTIONS (1)
  - Malaise [Unknown]

NARRATIVE: CASE EVENT DATE: 2016
